FAERS Safety Report 7204112-9 (Version None)
Quarter: 2010Q4

REPORT INFORMATION
  Report Type: 
  Country: None (occurrence: None)
  Receive Date: 20101230
  Receipt Date: 20101222
  Transmission Date: 20110411
  Serious: Yes (Other)
  Sender: FDA-Public Use
  Company Number: JP-ROCHE-702592

PATIENT
  Sex: Female

DRUGS (6)
  1. AVASTIN [Suspect]
     Route: 047
     Dates: start: 20070719, end: 20070719
  2. INSULIN [Concomitant]
     Dosage: HUMACART 3/7
  3. HORMONES NOS [Concomitant]
     Dosage: DOSE FORM: UNCERTAINTY, NOTE: DOSAGE IS UNCERTAIN.
     Route: 065
  4. KINEDAK [Concomitant]
     Route: 048
     Dates: start: 20000101
  5. ASPIRIN [Concomitant]
     Route: 048
     Dates: start: 20020101
  6. LIPITOR [Concomitant]
     Route: 048

REACTIONS (1)
  - MACULAR ISCHAEMIA [None]
